FAERS Safety Report 7108206-8 (Version None)
Quarter: 2010Q4

REPORT INFORMATION
  Report Type: 
  Country: None (occurrence: None)
  Receive Date: 20101117
  Receipt Date: 20101105
  Transmission Date: 20110411
  Serious: Yes (Hospitalization)
  Sender: FDA-Public Use
  Company Number: PHHO2010TW11070

PATIENT
  Sex: Male

DRUGS (7)
  1. BLINDED ALISKIREN ALI+TAB+CF [Suspect]
     Indication: CARDIAC FAILURE
     Dosage: CODE NOT BROKEN
     Route: 048
     Dates: start: 20100407
  2. ENALAPRIL MALEATE [Suspect]
     Indication: CARDIAC FAILURE
     Dosage: CODE NOT BROKEN
     Route: 048
     Dates: start: 20100407
  3. BLINDED NO TREATMENT RECEIVED NOMED [Suspect]
     Indication: CARDIAC FAILURE
     Dosage: CODE NOT BROKEN
     Route: 048
     Dates: start: 20100407
  4. ALISKIREN [Suspect]
     Indication: CARDIAC FAILURE
     Dosage: UNK
     Dates: start: 20100324, end: 20100407
  5. COMPARATOR ENALAPRIL [Suspect]
     Indication: CARDIAC FAILURE
     Dosage: 5MG
     Route: 048
     Dates: start: 20100224, end: 20100309
  6. COMPARATOR ENALAPRIL [Suspect]
     Dosage: 10MG
     Route: 048
     Dates: start: 20100310, end: 20100324
  7. METHYLPREDNISOLONE [Concomitant]
     Indication: CHRONIC OBSTRUCTIVE PULMONARY DISEASE
     Dosage: UNK
     Dates: start: 20101024

REACTIONS (8)
  - ACUTE PULMONARY OEDEMA [None]
  - BRAIN NATRIURETIC PEPTIDE INCREASED [None]
  - CARDIAC FAILURE CONGESTIVE [None]
  - CONGESTIVE CARDIOMYOPATHY [None]
  - DYSPNOEA [None]
  - DYSPNOEA EXERTIONAL [None]
  - MALNUTRITION [None]
  - ORTHOPNOEA [None]
